FAERS Safety Report 6852229-0 (Version None)
Quarter: 2010Q3

REPORT INFORMATION
  Report Type: 
  Country: None (occurrence: None)
  Receive Date: 20100717
  Receipt Date: 20071110
  Transmission Date: 20110219
  Serious: No
  Sender: FDA-Public Use
  Company Number: US-PFIZER INC-2007097313

PATIENT
  Sex: Female
  Weight: 65.9 kg

DRUGS (18)
  1. CHANTIX [Suspect]
     Indication: SMOKING CESSATION THERAPY
     Route: 048
     Dates: start: 20070101
  2. TRAZODONE HYDROCHLORIDE [Concomitant]
  3. RANITIDINE [Concomitant]
  4. BUSPIRONE [Concomitant]
  5. DEPAKOTE [Concomitant]
  6. PROMETHAZINE [Concomitant]
  7. METOCLOPRAMIDE [Concomitant]
  8. ROBAXIN [Concomitant]
  9. LORTAB [Concomitant]
  10. VYTORIN [Concomitant]
  11. FLUDROCORTISONE [Concomitant]
  12. METOPROLOL [Concomitant]
  13. PHENYTOIN [Concomitant]
  14. LAMICTAL [Concomitant]
  15. LASIX [Concomitant]
  16. ACETYLSALICYLIC ACID [Concomitant]
  17. FLUOXETINE HCL [Concomitant]
  18. REQUIP [Concomitant]

REACTIONS (1)
  - DIZZINESS [None]
